FAERS Safety Report 8712733 (Version 9)
Quarter: 2013Q2

REPORT INFORMATION
  Report Type: Spontaneous
  Country: US (occurrence: US)
  Receive Date: 20120808
  Receipt Date: 20130522
  Transmission Date: 20140414
  Serious: Yes (Life-Threatening, Hospitalization, Disabling, Other)
  Sender: FDA-Public Use
  Company Number: US-PFIZER INC-2012192915

PATIENT
  Age: 39 Year
  Sex: Male

DRUGS (4)
  1. ADVIL [Suspect]
     Indication: HEADACHE
     Dosage: 200 MG, UNK
     Route: 065
     Dates: start: 201004
  2. MOTRIN [Suspect]
     Indication: PAIN
     Dosage: UNK
     Route: 065
  3. TYLENOL [Suspect]
     Indication: PAIN
     Dosage: 650 MG, UNK
     Route: 065
  4. PENICILLIN [Suspect]
     Indication: PHARYNGITIS STREPTOCOCCAL
     Route: 030

REACTIONS (13)
  - Stevens-Johnson syndrome [Not Recovered/Not Resolved]
  - Blindness [Not Recovered/Not Resolved]
  - Skin disorder [Not Recovered/Not Resolved]
  - Respiratory distress [Unknown]
  - Pulmonary oedema [Unknown]
  - Post-traumatic stress disorder [Not Recovered/Not Resolved]
  - Anxiety [Not Recovered/Not Resolved]
  - Confusional state [Unknown]
  - Toxic epidermal necrolysis [None]
  - Pain [None]
  - Pharyngitis streptococcal [None]
  - Dysuria [None]
  - Haemorrhage urinary tract [None]
